FAERS Safety Report 23833290 (Version 3)
Quarter: 2024Q2

REPORT INFORMATION
  Report Type: Spontaneous
  Country: US (occurrence: US)
  Receive Date: 20240508
  Receipt Date: 20240516
  Transmission Date: 20240716
  Serious: Yes (Hospitalization, Other)
  Sender: FDA-Public Use
  Company Number: US-SAREPTA THERAPEUTICS INC.-SRP2024-004607

PATIENT
  Age: 59 Year
  Sex: Female

DRUGS (2)
  1. AMONDYS 45 [Suspect]
     Active Substance: CASIMERSEN
     Indication: Duchenne muscular dystrophy
     Dosage: 1950 MILLIGRAM, WEEKLY
     Route: 042
  2. AMONDYS 45 [Suspect]
     Active Substance: CASIMERSEN
     Dosage: 1950 MILLIGRAM, WEEKLY
     Route: 042
     Dates: start: 20240423

REACTIONS (2)
  - Cardiac failure [Unknown]
  - Fatigue [Unknown]

NARRATIVE: CASE EVENT DATE: 20240401
